FAERS Safety Report 5289164-8 (Version None)
Quarter: 2007Q1

REPORT INFORMATION
  Report Type: 
  Country: None (occurrence: None)
  Receive Date: 20070122
  Receipt Date: 20060216
  Transmission Date: 20070707
  Serious: Yes (Hospitalization)
  Sender: FDA-Public Use
  Company Number: 2006EN000070

PATIENT
  Age: 42 Year
  Sex: Male
  Weight: 88 kg

DRUGS (14)
  1. ABELCET [Suspect]
     Indication: ASPIRATION TRACHEAL
     Dosage: 400 MG;QD;IV
     Route: 042
     Dates: start: 20060203, end: 20060217
  2. ABELCET [Suspect]
     Indication: FUNGAL INFECTION
     Dosage: 400 MG;QD;IV
     Route: 042
     Dates: start: 20060203, end: 20060217
  3. GANCICLOVIR [Suspect]
     Indication: CYTOMEGALOVIRUS INFECTION
     Dosage: SEE IMAGE
     Route: 042
     Dates: start: 20060209, end: 20060213
  4. GANCICLOVIR [Suspect]
     Indication: CYTOMEGALOVIRUS INFECTION
     Dosage: SEE IMAGE
     Route: 042
     Dates: start: 20060214, end: 20060215
  5. CRIXIVAN [Concomitant]
  6. ATIVAN [Concomitant]
  7. NEUMEGA [Concomitant]
  8. INSULIN [Concomitant]
  9. PROSTAT [Concomitant]
  10. PULMOCARE [Concomitant]
  11. PEPCID [Concomitant]
  12. SOLU-MEDROL [Concomitant]
  13. SPIRIVA [Concomitant]
  14. XOPENEX [Concomitant]

REACTIONS (1)
  - RENAL IMPAIRMENT [None]
